FAERS Safety Report 9752456 (Version 1)
Quarter: 2013Q4

REPORT INFORMATION
  Report Type: Spontaneous
  Country: US (occurrence: US)
  Receive Date: 20131213
  Receipt Date: 20131213
  Transmission Date: 20140711
  Serious: No
  Sender: FDA-Public Use
  Company Number: US-009507513-1312USA001090

PATIENT
  Age: 78 Year
  Sex: Female

DRUGS (1)
  1. AZASITE [Suspect]
     Indication: EYE INFECTION BACTERIAL
     Dosage: 1 DROP BOTH EYES TWICE DAILY
     Route: 047
     Dates: start: 20131129, end: 20131130

REACTIONS (2)
  - Pain [Recovered/Resolved]
  - Burning sensation [Recovered/Resolved]
